FAERS Safety Report 23601536 (Version 2)
Quarter: 2024Q1

REPORT INFORMATION
  Report Type: Spontaneous
  Country: ES (occurrence: ES)
  Receive Date: 20240306
  Receipt Date: 20240325
  Transmission Date: 20240410
  Serious: Yes (Other)
  Sender: FDA-Public Use
  Company Number: ES-AMGEN-ESPSP2024042386

PATIENT
  Age: 85 Year
  Sex: Female

DRUGS (1)
  1. PROLIA [Suspect]
     Active Substance: DENOSUMAB
     Indication: Osteoporosis
     Route: 065

REACTIONS (6)
  - Breast cancer [Unknown]
  - Head injury [Unknown]
  - Fall [Unknown]
  - Inflammation [Unknown]
  - Tooth discolouration [Unknown]
  - Tooth loss [Unknown]

NARRATIVE: CASE EVENT DATE: 20230101
